FAERS Safety Report 6413962-8 (Version None)
Quarter: 2009Q4

REPORT INFORMATION
  Report Type: 
  Country: None (occurrence: None)
  Receive Date: 20091022
  Receipt Date: 20091022
  Transmission Date: 20100525
  Serious: Yes (Hospitalization)
  Sender: FDA-Public Use
  Company Number: None

PATIENT
  Sex: Male
  Weight: 103.4201 kg

DRUGS (9)
  1. RITUXAN [Suspect]
     Indication: B-CELL LYMPHOMA
     Dosage: 375 MG/M2 Q2WEEKS INTRAVENOUS
     Route: 042
     Dates: start: 20090811
  2. CYCLOPHOSPHAMIDE [Suspect]
     Indication: B-CELL LYMPHOMA
     Dosage: 750MG/M2 Q2WEEKS INTRAVENOUS
     Route: 042
     Dates: start: 20090812
  3. PERCOCET [Concomitant]
  4. MOTRIN [Concomitant]
  5. FLEXERIL [Concomitant]
  6. DOXORUBICIN HCL [Suspect]
     Indication: B-CELL LYMPHOMA
     Dosage: 50 MG/M2 Q2WEEKS INTRAVENOUS
     Route: 042
     Dates: start: 20090812
  7. VINCRISTINE [Suspect]
     Indication: B-CELL LYMPHOMA
     Dosage: 2 MG MAX Q2WEEKS INTRAVENOUS
     Route: 042
     Dates: start: 20090812
  8. PREDNISONE TAB [Suspect]
     Indication: B-CELL LYMPHOMA
     Dosage: 100 MG DAYS 1-5 ORAL
     Route: 048
     Dates: start: 20090812, end: 20090816
  9. NEULASTA [Suspect]
     Indication: B-CELL LYMPHOMA
     Dosage: 6 MG DAY 2
     Dates: start: 20090813

REACTIONS (5)
  - ASTHENIA [None]
  - FEBRILE NEUTROPENIA [None]
  - HYPERHIDROSIS [None]
  - PALLOR [None]
  - TACHYCARDIA [None]
